FAERS Safety Report 5580427-5 (Version None)
Quarter: 2008Q1

REPORT INFORMATION
  Report Type: 
  Country: None (occurrence: None)
  Receive Date: 20080103
  Receipt Date: 20071220
  Transmission Date: 20080703
  Serious: Yes (Hospitalization)
  Sender: FDA-Public Use
  Company Number: US-ELI_LILLY_AND_COMPANY-US200712004401

PATIENT
  Age: 68 Year
  Sex: Male
  Weight: 91.8 kg

DRUGS (5)
  1. PEMETREXED [Suspect]
     Indication: OESOPHAGEAL CARCINOMA
     Dosage: UNK, OTHER
     Route: 042
     Dates: start: 20070618
  2. PEMETREXED [Suspect]
     Dosage: 1735 MG, OTHER
     Route: 042
     Dates: end: 20070719
  3. CARBOPLATIN [Suspect]
     Indication: OESOPHAGEAL CARCINOMA
     Dosage: UNK, OTHER
     Route: 042
     Dates: start: 20070618
  4. CARBOPLATIN [Suspect]
     Dosage: 848 MG, OTHER
     Route: 042
     Dates: end: 20070719
  5. RADIATION [Suspect]
     Indication: OESOPHAGEAL CARCINOMA
     Dosage: UNK, OTHER
     Dates: start: 20070618, end: 20070808

REACTIONS (1)
  - OESOPHAGEAL FISTULA [None]
